FAERS Safety Report 19350282 (Version 1)
Quarter: 2021Q2

REPORT INFORMATION
  Report Type: Spontaneous
  Country: US (occurrence: US)
  Receive Date: 20210531
  Receipt Date: 20210531
  Transmission Date: 20210717
  Serious: No
  Sender: FDA-Public Use
  Company Number: US-ESPERIONTHERAPEUTICS-2021USA00924

PATIENT
  Age: 56 Year
  Sex: Female
  Weight: 63.04 kg

DRUGS (2)
  1. NEXLIZET [Suspect]
     Active Substance: BEMPEDOIC ACID\EZETIMIBE
     Dosage: 180/10 MILLIGRAM, QD
     Route: 048
     Dates: start: 20210504, end: 20210505
  2. NEXLIZET [Suspect]
     Active Substance: BEMPEDOIC ACID\EZETIMIBE
     Indication: BLOOD CHOLESTEROL INCREASED
     Dosage: 180/10 MILLIGRAM, QD
     Route: 048
     Dates: start: 202104

REACTIONS (3)
  - Abdominal distension [Recovering/Resolving]
  - Eating disorder symptom [Recovering/Resolving]
  - Abdominal pain upper [Recovering/Resolving]

NARRATIVE: CASE EVENT DATE: 202104
